FAERS Safety Report 9081224 (Version 1)
Quarter: 2013Q1

REPORT INFORMATION
  Report Type: Report from Study
  Country: US (occurrence: US)
  Receive Date: 20130130
  Receipt Date: 20130130
  Transmission Date: 20140127
  Serious: No
  Sender: FDA-Public Use
  Company Number: US-ABBOTT-12P-163-0966171-00

PATIENT
  Sex: Female
  Weight: 61.74 kg

DRUGS (6)
  1. HUMIRA 40 MG/0.8 ML PEN [Suspect]
     Indication: RHEUMATOID ARTHRITIS
     Dates: start: 2007, end: 2007
  2. METHOTREXATE [Concomitant]
     Indication: RHEUMATOID ARTHRITIS
  3. MECLIZINE [Concomitant]
     Indication: NAUSEA
  4. FOLIC ACID [Concomitant]
     Indication: RHEUMATOID ARTHRITIS
  5. CLONIDINE [Concomitant]
     Indication: HYPERTENSION
  6. LASIX [Concomitant]
     Indication: FLUID RETENTION

REACTIONS (2)
  - Malaise [Recovered/Resolved]
  - Sensation of heaviness [Recovered/Resolved]
